FAERS Safety Report 7180162-6 (Version None)
Quarter: 2010Q4

REPORT INFORMATION
  Report Type: 
  Country: None (occurrence: None)
  Receive Date: 20101221
  Receipt Date: 20101213
  Transmission Date: 20110411
  Serious: No
  Sender: FDA-Public Use
  Company Number: US-PFIZER INC-2010171831

PATIENT
  Age: 7 Year
  Sex: Male
  Weight: 30.84 kg

DRUGS (2)
  1. CHILDREN'S ADVIL [Suspect]
     Indication: PYREXIA
     Dosage: 2.5 DF, 2X/DAY
     Route: 048
     Dates: start: 20101213, end: 20101213
  2. CHILDREN'S ADVIL [Suspect]
     Indication: INFLUENZA

REACTIONS (1)
  - VOMITING [None]
